FAERS Safety Report 8156976-2 (Version None)
Quarter: 2012Q1

REPORT INFORMATION
  Report Type: 
  Country: None (occurrence: None)
  Receive Date: 20120103
  Receipt Date: 20111101
  Transmission Date: 20120608
  Serious: No
  Sender: FDA-Public Use
  Company Number: AE-2011-002036

PATIENT
  Age: 27 Year
  Sex: Female
  Weight: 63.5036 kg

DRUGS (3)
  1. RIBAVIRIN [Concomitant]
  2. INCIVEK [Suspect]
     Dosage: 2250 MG (750 MG, 1 IN 8 HR) , ORAL
     Route: 048
     Dates: start: 20110929
  3. PEGASYS [Concomitant]

REACTIONS (9)
  - EYE SWELLING [None]
  - NAUSEA [None]
  - VOMITING [None]
  - RASH ERYTHEMATOUS [None]
  - EYE PRURITUS [None]
  - PRURITUS [None]
  - OCULAR HYPERAEMIA [None]
  - SYNCOPE [None]
  - EYE PAIN [None]
